FAERS Safety Report 22786082 (Version 3)
Quarter: 2023Q4

REPORT INFORMATION
  Report Type: Spontaneous
  Country: US (occurrence: US)
  Receive Date: 20230804
  Receipt Date: 20231108
  Transmission Date: 20240109
  Serious: Yes (Other)
  Sender: FDA-Public Use
  Company Number: US-NOVOPROD-1098894

PATIENT
  Age: 72 Year
  Sex: Female

DRUGS (1)
  1. OZEMPIC [Suspect]
     Active Substance: SEMAGLUTIDE
     Indication: Type 2 diabetes mellitus
     Dosage: 0.5 MG
     Route: 058
     Dates: start: 202305, end: 20230720

REACTIONS (10)
  - Cardiac flutter [Unknown]
  - Malaise [Not Recovered/Not Resolved]
  - Feeling hot [Not Recovered/Not Resolved]
  - Pruritus [Not Recovered/Not Resolved]
  - Presyncope [Recovering/Resolving]
  - Tremor [Not Recovered/Not Resolved]
  - Urine abnormality [Unknown]
  - Asthenia [Not Recovered/Not Resolved]
  - Nausea [Not Recovered/Not Resolved]
  - Dizziness [Not Recovered/Not Resolved]

NARRATIVE: CASE EVENT DATE: 20230101
